FAERS Safety Report 25047689 (Version 1)
Quarter: 2025Q1

REPORT INFORMATION
  Report Type: Spontaneous
  Country: FR (occurrence: FR)
  Receive Date: 20250306
  Receipt Date: 20250306
  Transmission Date: 20250408
  Serious: Yes (Other)
  Sender: VERITY PHARMACEUTICALS INC.
  Company Number: FR-VER-202500013

PATIENT
  Age: 13 Year
  Sex: Male
  Weight: 52 kg

DRUGS (1)
  1. TRIPTORELIN PAMOATE [Suspect]
     Active Substance: TRIPTORELIN PAMOATE
     Indication: Aggression
     Dosage: POWDER FOR PROLONGED-RELEASE SUSPENSION FOR INJECT
     Route: 065
     Dates: start: 202411, end: 202502

REACTIONS (1)
  - Psychotic disorder [Recovering/Resolving]

NARRATIVE: CASE EVENT DATE: 20250101
